FAERS Safety Report 4654666-1 (Version None)
Quarter: 2005Q2

REPORT INFORMATION
  Report Type: 
  Country: None (occurrence: None)
  Receive Date: 20050503
  Receipt Date: 20050503
  Transmission Date: 20051028
  Serious: Yes (Other)
  Sender: FDA-Public Use
  Company Number: None

PATIENT
  Sex: Male
  Weight: 69.1 kg

DRUGS (2)
  1. CYCLOPHOSPHAMIDE [Suspect]
     Dosage: 4300MG IV QD X2DAYS
     Route: 042
     Dates: start: 20040802
  2. MESNA [Suspect]
     Dosage: 1075 MG/KG

REACTIONS (2)
  - BODY TEMPERATURE INCREASED [None]
  - PNEUMONIA BACTERIAL [None]
